FAERS Safety Report 5102206-5 (Version None)
Quarter: 2006Q3

REPORT INFORMATION
  Report Type: 
  Country: None (occurrence: None)
  Receive Date: 20060912
  Receipt Date: 20060905
  Transmission Date: 20061208
  Serious: Yes (Death, Hospitalization)
  Sender: FDA-Public Use
  Company Number: US-JNJFOC-20060901718

PATIENT
  Age: 45 Year
  Sex: Female

DRUGS (2)
  1. ACETAMINOPHEN [Suspect]
     Route: 048
  2. ACETAMINOPHEN [Suspect]
     Indication: ABDOMINAL PAIN
     Route: 048

REACTIONS (12)
  - ACTIVATED PARTIAL THROMBOPLASTIN TIME PROLONGED [None]
  - BLOOD AMYLASE INCREASED [None]
  - BLOOD PH INCREASED [None]
  - BLOOD PRESSURE DECREASED [None]
  - DRUG TOXICITY [None]
  - GASTROINTESTINAL HAEMORRHAGE [None]
  - HAEMATOCRIT DECREASED [None]
  - HAEMOGLOBIN DECREASED [None]
  - HEPATIC FUNCTION ABNORMAL [None]
  - INTENTIONAL DRUG MISUSE [None]
  - LIPASE INCREASED [None]
  - RENAL IMPAIRMENT [None]
